FAERS Safety Report 25092547 (Version 1)
Quarter: 2025Q1

REPORT INFORMATION
  Report Type: Spontaneous
  Country: US (occurrence: US)
  Receive Date: 20250319
  Receipt Date: 20250319
  Transmission Date: 20250409
  Serious: No
  Sender: AMGEN
  Company Number: US-AMGEN-USASP2025052136

PATIENT
  Sex: Female

DRUGS (2)
  1. TEPEZZA [Suspect]
     Active Substance: TEPROTUMUMAB-TRBW
     Indication: Endocrine ophthalmopathy
     Route: 065
     Dates: start: 20240801, end: 20250101
  2. TEPEZZA [Suspect]
     Active Substance: TEPROTUMUMAB-TRBW
     Route: 065

REACTIONS (1)
  - Altered visual depth perception [Unknown]
